FAERS Safety Report 22044419 (Version 1)
Quarter: 2023Q1

REPORT INFORMATION
  Report Type: Report from Study
  Country: CA (occurrence: CA)
  Receive Date: 20230228
  Receipt Date: 20230228
  Transmission Date: 20230417
  Serious: Yes (Other)
  Sender: FDA-Public Use
  Company Number: CA-BAYER-2023A024277

PATIENT
  Age: 55 Year
  Sex: Male

DRUGS (1)
  1. EYLEA [Suspect]
     Active Substance: AFLIBERCEPT
     Indication: Diabetic retinal oedema
     Dosage: 2 MG (0.05ML); SOLUTION FOR INJECTION; STRENGTH: 40MG/ML
     Route: 031

REACTIONS (2)
  - Blindness [Unknown]
  - Pain [Unknown]

NARRATIVE: CASE EVENT DATE: 20230216
